FAERS Safety Report 20439581 (Version 1)
Quarter: 2022Q1

REPORT INFORMATION
  Report Type: Spontaneous
  Country: AU (occurrence: AU)
  Receive Date: 20220207
  Receipt Date: 20220207
  Transmission Date: 20220423
  Serious: Yes (Other)
  Sender: FDA-Public Use
  Company Number: AU-ALLERGAN-2204659US

PATIENT
  Sex: Female

DRUGS (1)
  1. OZURDEX [Suspect]
     Active Substance: DEXAMETHASONE
     Indication: Diabetic retinal oedema
     Dosage: 0.7 MG, SINGLE
     Route: 031

REACTIONS (2)
  - Vascular graft [Unknown]
  - Stent placement [Unknown]

NARRATIVE: CASE EVENT DATE: 20211201
